FAERS Safety Report 12933979 (Version 1)
Quarter: 2016Q4

REPORT INFORMATION
  Report Type: Spontaneous
  Country: CA (occurrence: CA)
  Receive Date: 20161111
  Receipt Date: 20161111
  Transmission Date: 20170207
  Serious: Yes (Hospitalization)
  Sender: FDA-Public Use
  Company Number: ALCN2016CA007630

PATIENT
  Age: 71 Year
  Sex: Male

DRUGS (1)
  1. FLUORESCITE [Suspect]
     Active Substance: FLUORESCEIN SODIUM
     Indication: ANGIOGRAM RETINA
     Dosage: 5 ML, ONCE/SINGLE
     Route: 042

REACTIONS (4)
  - Retching [Recovered/Resolved]
  - Unresponsive to stimuli [Recovered/Resolved]
  - Paraesthesia [Recovered/Resolved]
  - Blood pressure decreased [Recovered/Resolved]
